FAERS Safety Report 13445855 (Version 1)
Quarter: 2017Q2

REPORT INFORMATION
  Report Type: Spontaneous
  Country: US (occurrence: US)
  Receive Date: 20170417
  Receipt Date: 20170417
  Transmission Date: 20170830
  Serious: Yes (Other)
  Sender: FDA-Public Use
  Company Number: US-AMGEN-USASP2017055740

PATIENT
  Age: 24 Year
  Sex: Female

DRUGS (17)
  1. DIGOXIN. [Concomitant]
     Active Substance: DIGOXIN
     Dosage: 125 MUG, QD
     Dates: start: 20120315, end: 201308
  2. FUROSEMIDE. [Concomitant]
     Active Substance: FUROSEMIDE
     Dosage: 20 MG, QD
     Dates: start: 20120315, end: 201212
  3. EPOPROSTENOL. [Concomitant]
     Active Substance: EPOPROSTENOL
     Dosage: UNK, UPTITRATE TO 23 NG/KG/MIN
     Dates: start: 201207
  4. EPOPROSTENOL. [Concomitant]
     Active Substance: EPOPROSTENOL
     Dosage: 20 NG, UNK
     Dates: start: 201306
  5. SULFAMETHOXAZOLE AND TRIMETHOPRIM [Concomitant]
     Active Substance: SULFAMETHOXAZOLE\TRIMETHOPRIM
     Dosage: UNK
  6. TREPROSTINIL [Concomitant]
     Active Substance: TREPROSTINIL
     Dosage: UNK, REDUCE TO 7 BREATHS 4X/DAY THEN BREATH TAPERED
     Dates: start: 201308
  7. EPOPROSTENOL. [Concomitant]
     Active Substance: EPOPROSTENOL
     Dosage: 2 NG, UNK
     Dates: start: 20120308
  8. ETANERCEPT [Suspect]
     Active Substance: ETANERCEPT
     Indication: STILL^S DISEASE
     Dosage: 50 MG, QWK
     Route: 058
  9. TADALAFIL [Concomitant]
     Active Substance: TADALAFIL
     Dosage: 20 MG, QD
     Dates: start: 201204, end: 201504
  10. AMBRISENTAN [Concomitant]
     Active Substance: AMBRISENTAN
     Dosage: 5 MG, QD
     Dates: start: 201305
  11. WARFARIN [Concomitant]
     Active Substance: WARFARIN
     Dosage: UNK, INR 2-3
     Dates: start: 20120315, end: 201308
  12. PREDNISONE. [Concomitant]
     Active Substance: PREDNISONE
     Dosage: 5 MG, QD
     Route: 058
  13. EPOPROSTENOL. [Concomitant]
     Active Substance: EPOPROSTENOL
     Dosage: 6 NG, UNK
     Dates: start: 20120315
  14. EPOPROSTENOL. [Concomitant]
     Active Substance: EPOPROSTENOL
     Dosage: 7.75 NG, UNK
     Dates: start: 201204
  15. EPOPROSTENOL. [Concomitant]
     Active Substance: EPOPROSTENOL
     Dosage: 23 NG, UNK
     Dates: start: 201210
  16. TREPROSTINIL [Concomitant]
     Active Substance: TREPROSTINIL
     Dosage: UNK, 3 BREATHS 4X/DAY INCREASING 1 BREATH EVERY 3 DAYS TO 9 BREATHS 4X/DAY
     Dates: start: 201306
  17. SPIRONOLACTONE. [Concomitant]
     Active Substance: SPIRONOLACTONE
     Dosage: 25 MG, QD
     Dates: start: 201204, end: 201308

REACTIONS (3)
  - Off label use [Unknown]
  - Right ventricular failure [Unknown]
  - Dose calculation error [Unknown]
